FAERS Safety Report 12810196 (Version 3)
Quarter: 2017Q2

REPORT INFORMATION
  Report Type: Report from Study
  Country: US (occurrence: US)
  Receive Date: 20161005
  Receipt Date: 20170502
  Transmission Date: 20170830
  Serious: Yes (Hospitalization, Other)
  Sender: FDA-Public Use
  Company Number: US-GILEAD-2016-0222459

PATIENT
  Age: 82 Year
  Sex: Male
  Weight: 96.15 kg

DRUGS (8)
  1. LASIX [Concomitant]
     Active Substance: FUROSEMIDE
  2. ANORO ELLIPTA [Concomitant]
     Active Substance: UMECLIDINIUM BROMIDE\VILANTEROL TRIFENATATE
  3. AMBRISENTAN [Suspect]
     Active Substance: AMBRISENTAN
     Indication: PRODUCT USED FOR UNKNOWN INDICATION
     Dosage: 10 MG, QD
     Route: 048
     Dates: start: 20120410
  4. COREG [Concomitant]
     Active Substance: CARVEDILOL
  5. METOLAZONE. [Concomitant]
     Active Substance: METOLAZONE
  6. INSULIN [Concomitant]
     Active Substance: INSULIN NOS
  7. WARFARIN [Concomitant]
     Active Substance: WARFARIN
  8. JANUVIA [Concomitant]
     Active Substance: SITAGLIPTIN PHOSPHATE

REACTIONS (10)
  - Pulmonary arterial hypertension [Not Recovered/Not Resolved]
  - Oedema [Recovered/Resolved]
  - Basal cell carcinoma [Unknown]
  - Abdominal distension [Recovered/Resolved]
  - Syncope [Unknown]
  - Fluid retention [Recovering/Resolving]
  - Dry skin [Unknown]
  - Peripheral swelling [Recovered/Resolved]
  - Blister [Recovered/Resolved]
  - Dyspnoea [Not Recovered/Not Resolved]

NARRATIVE: CASE EVENT DATE: 201609
